FAERS Safety Report 9818039 (Version 1)
Quarter: 2013Q4

REPORT INFORMATION
  Report Type: Spontaneous
  Country: US (occurrence: None)
  Receive Date: 20131223
  Receipt Date: 20131223
  Transmission Date: 20140711
  Serious: No
  Sender: FDA-Public Use
  Company Number: 219830

PATIENT
  Sex: Male

DRUGS (7)
  1. PICATO GEL [Suspect]
     Indication: ACTINIC KERATOSIS
     Route: 061
     Dates: start: 20121129
  2. CRESTOR (ROSUVASTATIN) [Concomitant]
  3. KLONOPIN (CLONAZEPAM) (TABLETS) [Concomitant]
  4. FLONASE (FLUTICASONE PROPIONATE) [Concomitant]
  5. LISINOPRIL (LISINOPRIL) [Concomitant]
  6. FINASTERIDE (FINASTERIDE) [Concomitant]
  7. ACETYLSALICYLIC ACID) [Concomitant]

REACTIONS (6)
  - Application site erythema [None]
  - Application site pain [None]
  - Pruritus [None]
  - Lacrimation increased [None]
  - Eye irritation [None]
  - Drug administered at inappropriate site [None]
